FAERS Safety Report 8334520-4 (Version None)
Quarter: 2012Q2

REPORT INFORMATION
  Report Type: 
  Country: None (occurrence: None)
  Receive Date: 20120503
  Receipt Date: 20120430
  Transmission Date: 20120825
  Serious: No
  Sender: FDA-Public Use
  Company Number: US-JNJFOC-20120502068

PATIENT
  Sex: Male

DRUGS (8)
  1. INVEGA SUSTENNA [Suspect]
     Indication: ANXIETY
     Route: 065
  2. INVEGA [Concomitant]
     Route: 048
  3. INVEGA SUSTENNA [Suspect]
     Indication: DEPRESSION
     Route: 065
  4. INVEGA [Concomitant]
     Route: 048
  5. INVEGA SUSTENNA [Suspect]
     Indication: ANGER
     Route: 065
  6. CAMPRAL [Concomitant]
  7. INVEGA SUSTENNA [Suspect]
     Indication: OBSESSIVE-COMPULSIVE DISORDER
     Route: 065
  8. COGENTIN [Concomitant]

REACTIONS (2)
  - EXTRAPYRAMIDAL DISORDER [None]
  - OFF LABEL USE [None]
